FAERS Safety Report 19777578 (Version 1)
Quarter: 2021Q3

REPORT INFORMATION
  Report Type: Spontaneous
  Country: US (occurrence: US)
  Receive Date: 20210902
  Receipt Date: 20210902
  Transmission Date: 20211014
  Serious: Yes (Other)
  Sender: FDA-Public Use
  Company Number: US-ADVANZ PHARMA-202108005876

PATIENT

DRUGS (7)
  1. PREDNISOLONE. [Suspect]
     Active Substance: PREDNISOLONE
     Dosage: 1% 3 TIMES DAILY
     Route: 061
  2. RITUXIMAB. [Concomitant]
     Active Substance: RITUXIMAB
     Dosage: SYSTEMIC
  3. PREDNISOLONE. [Suspect]
     Active Substance: PREDNISOLONE
     Dosage: 1% 6 TIMES DAILY
     Route: 061
  4. PREDNISOLONE. [Suspect]
     Active Substance: PREDNISOLONE
     Indication: POST TRANSPLANT LYMPHOPROLIFERATIVE DISORDER
     Dosage: 1 %
     Route: 061
  5. RITUXIMAB. [Concomitant]
     Active Substance: RITUXIMAB
     Dosage: 5 BILATERAL INTRAOCULAR RITUXIMAB INJECTIONS (1 MG/0.1 ML)
     Route: 031
  6. METHOTREXATE. [Suspect]
     Active Substance: METHOTREXATE
     Indication: KERATIC PRECIPITATES
     Dosage: 400 MCG IN 0.1 ML
  7. PREDNISOLONE. [Suspect]
     Active Substance: PREDNISOLONE
     Indication: EXTRANODAL MARGINAL ZONE B-CELL LYMPHOMA (MALT TYPE)
     Dosage: 1% 3?4 TIMES DAILY
     Route: 061

REACTIONS (5)
  - Drug ineffective [Unknown]
  - Tissue infiltration [Unknown]
  - Intraocular pressure increased [Recovered/Resolved]
  - Ocular hypertension [Unknown]
  - Condition aggravated [Unknown]
